FAERS Safety Report 10531482 (Version 2)
Quarter: 2014Q4

REPORT INFORMATION
  Report Type: Report from Study
  Country: AU (occurrence: AU)
  Receive Date: 20141021
  Receipt Date: 20141021
  Transmission Date: 20150529
  Serious: Yes (Hospitalization, Other)
  Sender: FDA-Public Use
  Company Number: PHHY2014AU100768

PATIENT
  Age: 36 Year
  Sex: Female

DRUGS (3)
  1. RISPERIDONE. [Concomitant]
     Active Substance: RISPERIDONE
     Indication: SCHIZOPHRENIA
     Dosage: 62.5 MG, FORTNIGHTLY
     Route: 030
     Dates: start: 2013
  2. CLOZARIL [Suspect]
     Active Substance: CLOZAPINE
     Indication: SCHIZOPHRENIA
     Dosage: 200 MG, NOCTE
     Route: 048
     Dates: start: 20140416, end: 20140729
  3. LITHIUM [Concomitant]
     Active Substance: LITHIUM CARBONATE
     Indication: SCHIZOPHRENIA
     Dosage: 500 MG, BID
     Route: 048
     Dates: start: 20130304, end: 20140721

REACTIONS (8)
  - Myopathy endocrine [Unknown]
  - Antipsychotic drug level above therapeutic [Recovered/Resolved]
  - Hypothyroidism [Unknown]
  - Exercise tolerance decreased [Unknown]
  - Malaise [Unknown]
  - Hyperthyroidism [Unknown]
  - Fatigue [Unknown]
  - Blood creatine phosphokinase increased [Recovered/Resolved]

NARRATIVE: CASE EVENT DATE: 20140416
